FAERS Safety Report 10015318 (Version 1)
Quarter: 2014Q1

REPORT INFORMATION
  Report Type: Spontaneous
  Country: US (occurrence: US)
  Receive Date: 20140317
  Receipt Date: 20140317
  Transmission Date: 20141002
  Serious: No
  Sender: FDA-Public Use
  Company Number: US-PFIZER INC-2014073793

PATIENT
  Age: 56 Year
  Sex: Female
  Weight: 59.86 kg

DRUGS (2)
  1. EFFEXOR XR [Suspect]
     Indication: HOT FLUSH
     Dosage: UNK, 1X/DAY
     Route: 048
     Dates: start: 201203, end: 201203
  2. TAMOXIFEN [Concomitant]
     Indication: BREAST CANCER FEMALE
     Dosage: UNK

REACTIONS (2)
  - Cardiac disorder [Unknown]
  - Intentional drug misuse [Recovered/Resolved]
